FAERS Safety Report 5734963-9 (Version None)
Quarter: 2008Q2

REPORT INFORMATION
  Report Type: 
  Country: None (occurrence: None)
  Receive Date: 20080512
  Receipt Date: 20080507
  Transmission Date: 20081010
  Serious: Yes (Other)
  Sender: FDA-Public Use
  Company Number: JP-BRISTOL-MYERS SQUIBB COMPANY-14184543

PATIENT
  Age: 64 Year
  Sex: Female

DRUGS (2)
  1. VEPESID [Suspect]
     Indication: LUNG NEOPLASM MALIGNANT
     Route: 048
  2. PARAPLATIN [Suspect]
     Indication: LUNG NEOPLASM MALIGNANT
     Dosage: INITIATED ON DAY 1.
     Route: 041

REACTIONS (1)
  - INTERSTITIAL LUNG DISEASE [None]
